FAERS Safety Report 4390538-8 (Version None)
Quarter: 2004Q2

REPORT INFORMATION
  Report Type: 
  Country: None (occurrence: None)
  Receive Date: 20040630
  Receipt Date: 20040617
  Transmission Date: 20050107
  Serious: Yes (Other)
  Sender: FDA-Public Use
  Company Number: 2004041004

PATIENT
  Sex: Female
  Weight: 113.3993 kg

DRUGS (5)
  1. NEURONTIN [Suspect]
     Indication: ROAD TRAFFIC ACCIDENT
     Dosage: 2400 MG (800 MG, 3 IN 1 D), ORAL
     Route: 048
     Dates: start: 20000101
  2. BUPROPION HYDROCHLORIDE [Suspect]
     Indication: NERVOUSNESS
  3. VENLAFAXINE HCL [Concomitant]
  4. LEVOTHYROXINE SODIUM [Concomitant]
  5. BACLOFEN [Concomitant]

REACTIONS (6)
  - DRUG HYPERSENSITIVITY [None]
  - MUSCLE SPASMS [None]
  - NERVOUS SYSTEM DISORDER [None]
  - PHARMACEUTICAL PRODUCT COMPLAINT [None]
  - TREMOR [None]
  - WEIGHT INCREASED [None]
